FAERS Safety Report 6784533-9 (Version None)
Quarter: 2010Q2

REPORT INFORMATION
  Report Type: 
  Country: None (occurrence: None)
  Receive Date: 20100622
  Receipt Date: 20100610
  Transmission Date: 20101027
  Serious: Yes (Hospitalization)
  Sender: FDA-Public Use
  Company Number: FR-PFIZER INC-2010063468

PATIENT
  Age: 24 Year
  Sex: Male

DRUGS (3)
  1. XANAX [Suspect]
     Dosage: 10 TO 12.5 G
     Route: 048
     Dates: start: 20100113, end: 20100113
  2. ALPRAZOLAM [Suspect]
     Dosage: 7 G
     Route: 048
     Dates: start: 20100113, end: 20100113
  3. PARACETAMOL [Suspect]
     Dosage: 10 G
     Route: 048
     Dates: start: 20100113, end: 20100113

REACTIONS (2)
  - COMA [None]
  - OVERDOSE [None]
